FAERS Safety Report 5404050-8 (Version None)
Quarter: 2007Q3

REPORT INFORMATION
  Report Type: 
  Country: None (occurrence: None)
  Receive Date: 20070802
  Receipt Date: 20070720
  Transmission Date: 20080115
  Serious: Yes (Hospitalization, Other)
  Sender: FDA-Public Use
  Company Number: US-ELI_LILLY_AND_COMPANY-US200608005943

PATIENT
  Age: 67 Year
  Sex: Female
  Weight: 58.049 kg

DRUGS (10)
  1. FORTEO [Suspect]
     Indication: OSTEOPOROSIS
     Dates: start: 20060331
  2. FORTEO [Suspect]
     Dosage: 20 UG, DAILY (1/D)
     Dates: start: 20060331
  3. NASACORT AQ [Concomitant]
     Indication: RHINITIS
  4. ALLEGRA [Concomitant]
     Indication: RHINITIS
  5. ZOCOR [Concomitant]
     Indication: BLOOD CHOLESTEROL
  6. NEXIUM [Concomitant]
     Indication: REFLUX OESOPHAGITIS
  7. COMBIVENT /GFR/ [Concomitant]
     Indication: ASTHMA
     Dosage: UNK UNK, AS NEEDED
  8. ADVAIR DISKUS 100/50 [Concomitant]
     Indication: ASTHMA
     Dosage: UNK UNK,
  9. CALCIUM CHLORIDE [Concomitant]
     Indication: MINERAL SUPPLEMENTATION
     Dosage: 500 MG, UNK
  10. VITAMIN D [Concomitant]
     Indication: VITAMIN D DECREASED
     Dosage: 800 IU, UNK

REACTIONS (8)
  - BRONCHIECTASIS [None]
  - CONFUSIONAL STATE [None]
  - LUNG DISORDER [None]
  - LUNG INFECTION [None]
  - PLEURISY [None]
  - PLEURITIC PAIN [None]
  - PNEUMONIA [None]
  - STAPHYLOCOCCAL INFECTION [None]
